FAERS Safety Report 16694475 (Version 1)
Quarter: 2019Q3

REPORT INFORMATION
  Report Type: Spontaneous
  Country: US (occurrence: US)
  Receive Date: 20190812
  Receipt Date: 20190812
  Transmission Date: 20191004
  Serious: Yes (Hospitalization, Other)
  Sender: FDA-Public Use
  Company Number: US-TARO-2019TAR00569

PATIENT
  Age: 82 Year
  Sex: Female
  Weight: 67.57 kg

DRUGS (12)
  1. VITAMIN D3 [Concomitant]
     Active Substance: CHOLECALCIFEROL
  2. FISH OILS [Concomitant]
  3. AMLODIPINE [Concomitant]
     Active Substance: AMLODIPINE BESYLATE
     Dosage: 10 MG, 1X/DAY
  4. LISINOPRIL. [Concomitant]
     Active Substance: LISINOPRIL
     Dosage: 40 MG, 1X/DAY
  5. INSULIN PUMP [Concomitant]
     Active Substance: INSULIN NOS
  6. ATENOLOL. [Concomitant]
     Active Substance: ATENOLOL
     Dosage: 50 MG, 1X/DAY
  7. VITAMIN B [Concomitant]
     Active Substance: VITAMIN B
  8. CLOBETASOL PROPIONATE TOPICAL SOLUTION USP 0.05% [Suspect]
     Active Substance: CLOBETASOL PROPIONATE
     Indication: LICHEN PLANUS
     Dosage: ^4 SQUIRTS^, 1X/DAY
     Route: 061
     Dates: end: 2019
  9. VITAMIN C [Concomitant]
     Active Substance: ASCORBIC ACID
  10. PRAVASTATIN. [Concomitant]
     Active Substance: PRAVASTATIN
     Dosage: 20 MG, 1X/DAY
  11. BABY ASPIRIN [Concomitant]
     Active Substance: ASPIRIN
     Dosage: 81 MG, 1X/DAY
  12. UNSPECIFIED INSULIN [Concomitant]
     Active Substance: INSULIN NOS

REACTIONS (15)
  - Wrist fracture [Recovered/Resolved]
  - Drug ineffective for unapproved indication [Recovered/Resolved]
  - Skin exfoliation [Not Recovered/Not Resolved]
  - Product administered at inappropriate site [Recovered/Resolved]
  - Incorrect product administration duration [Recovered/Resolved]
  - Fall [Recovered/Resolved]
  - Skin erosion [Not Recovered/Not Resolved]
  - Pain [Not Recovered/Not Resolved]
  - Dermatitis [Not Recovered/Not Resolved]
  - Skin discolouration [Not Recovered/Not Resolved]
  - Glaucoma [Recovering/Resolving]
  - Hip fracture [Recovered/Resolved]
  - Application site wound [Not Recovered/Not Resolved]
  - Skin atrophy [Not Recovered/Not Resolved]
  - Inappropriate schedule of product administration [Recovered/Resolved]

NARRATIVE: CASE EVENT DATE: 201811
